FAERS Safety Report 17263218 (Version 2)
Quarter: 2020Q3

REPORT INFORMATION
  Report Type: Spontaneous
  Country: CN (occurrence: CN)
  Receive Date: 20200113
  Receipt Date: 20200811
  Transmission Date: 20201102
  Serious: Yes (Other)
  Sender: FDA-Public Use
  Company Number: CN-UCBSA-2020000770

PATIENT

DRUGS (2)
  1. ALPROSTADIL. [Suspect]
     Active Substance: ALPROSTADIL
     Indication: ACUTE CORONARY SYNDROME
     Dosage: UNK
     Route: 022
  2. ALPROSTADIL. [Suspect]
     Active Substance: ALPROSTADIL
     Indication: OFF LABEL USE

REACTIONS (7)
  - Interleukin level increased [Unknown]
  - Arrhythmia [Unknown]
  - Off label use [Unknown]
  - Cardiac failure [Unknown]
  - Angina pectoris [Unknown]
  - Myocardial infarction [Unknown]
  - C-reactive protein increased [Unknown]
